FAERS Safety Report 8603934-7 (Version None)
Quarter: 2012Q3

REPORT INFORMATION
  Report Type: 
  Country: None (occurrence: None)
  Receive Date: 20120820
  Receipt Date: 20120806
  Transmission Date: 20120928
  Serious: Yes (Hospitalization)
  Sender: FDA-Public Use
  Company Number: FR-BIOGENIDEC-2011BI032037

PATIENT
  Age: 41 Year
  Sex: Female
  Weight: 60 kg

DRUGS (11)
  1. LYRICA [Concomitant]
     Route: 048
     Dates: start: 20110101
  2. LYRICA [Concomitant]
     Route: 048
     Dates: end: 20110901
  3. LYRICA [Concomitant]
     Route: 048
     Dates: start: 20110901
  4. OMIX [Concomitant]
     Route: 048
  5. TYSABRI [Suspect]
     Indication: MULTIPLE SCLEROSIS
     Route: 042
     Dates: start: 20081121, end: 20110718
  6. LIORESAL [Concomitant]
     Indication: MUSCLE SPASTICITY
     Route: 048
     Dates: end: 20110901
  7. PROZAC [Concomitant]
     Route: 048
  8. LIORESAL [Concomitant]
     Route: 048
     Dates: start: 20110901
  9. LEXOMIL [Concomitant]
     Indication: SLEEP DISORDER
     Route: 048
     Dates: start: 20110901
  10. CLONAZEPAM [Concomitant]
     Route: 048
  11. COPAXONE [Concomitant]
     Indication: MULTIPLE SCLEROSIS
     Dates: start: 20110920

REACTIONS (1)
  - PROGRESSIVE MULTIFOCAL LEUKOENCEPHALOPATHY [None]
